FAERS Safety Report 8391509-7 (Version None)
Quarter: 2012Q1

REPORT INFORMATION
  Report Type: 
  Country: None (occurrence: None)
  Receive Date: 20120323
  Receipt Date: 20110811
  Transmission Date: 20120608
  Serious: Yes (Other)
  Sender: FDA-Public Use
  Company Number: 163-21880-11033346

PATIENT
  Age: 60 Year
  Sex: Female

DRUGS (10)
  1. REVLIMID [Suspect]
     Indication: MULTIPLE MYELOMA
     Dosage: 10 MG, DAILY FOR 21 DAYS, PO
     Route: 048
     Dates: start: 20101104, end: 20110404
  2. CLARITIN [Concomitant]
  3. VELCADE [Concomitant]
  4. ASPIRIN [Concomitant]
  5. SIMVASTATIN [Concomitant]
  6. VALTREX [Concomitant]
  7. MVI (MVI) (TABLETS) [Concomitant]
  8. OMEGA-3 (OMEGA-3 TRIGLYCERIDES) [Concomitant]
  9. BONIVA [Concomitant]
  10. ASCORBIC ACID [Concomitant]

REACTIONS (1)
  - PANCYTOPENIA [None]
